FAERS Safety Report 7816926-2 (Version None)
Quarter: 2011Q4

REPORT INFORMATION
  Report Type: 
  Country: None (occurrence: None)
  Receive Date: 20111017
  Receipt Date: 20111003
  Transmission Date: 20120403
  Serious: Yes (Hospitalization, Other)
  Sender: FDA-Public Use
  Company Number: US-ELI_LILLY_AND_COMPANY-US201107003779

PATIENT
  Sex: Female
  Weight: 79.4 kg

DRUGS (7)
  1. ALDACTONE [Concomitant]
  2. FORTEO [Suspect]
     Indication: OSTEOPOROSIS
     Dosage: 20 UG, QD
     Route: 065
     Dates: start: 20110701
  3. THYROID TAB [Concomitant]
  4. NORVASC [Concomitant]
  5. PHENOBARBITAL TAB [Concomitant]
  6. FORTEO [Suspect]
     Dosage: 20 UG, QD
     Route: 065
     Dates: end: 20110802
  7. DILANTIN [Concomitant]

REACTIONS (3)
  - MUSCLE SPASMS [None]
  - HIP FRACTURE [None]
  - FALL [None]
